FAERS Safety Report 16152478 (Version 1)
Quarter: 2019Q2

REPORT INFORMATION
  Report Type: Spontaneous
  Country: JP (occurrence: JP)
  Receive Date: 20190403
  Receipt Date: 20190403
  Transmission Date: 20190711
  Serious: Yes (Hospitalization, Other)
  Sender: FDA-Public Use
  Company Number: JP-TEVA-2019-JP-1032583

PATIENT
  Age: 35 Year
  Sex: Female

DRUGS (5)
  1. METHYLDOPA. [Suspect]
     Active Substance: METHYLDOPA
     Indication: PRE-ECLAMPSIA
     Route: 065
  2. PREDNISOLONE. [Suspect]
     Active Substance: PREDNISOLONE
     Dosage: DOSE GRADUALLY REDUCED TO 15MG ON ALTERNATE DAYS OVER 1 YEAR PERIOD
     Route: 048
  3. NIFEDIPINE. [Suspect]
     Active Substance: NIFEDIPINE
     Indication: PRE-ECLAMPSIA
     Route: 065
  4. PREDNISOLONE. [Suspect]
     Active Substance: PREDNISOLONE
     Dosage: REDUCED TO 10 MG ON ALTERNATE DAYS
     Route: 048
  5. PREDNISOLONE. [Suspect]
     Active Substance: PREDNISOLONE
     Indication: GLOMERULONEPHRITIS MEMBRANOPROLIFERATIVE
     Dosage: 60 MG FOR 4 WEEKS
     Route: 048

REACTIONS (3)
  - Maternal exposure during pregnancy [Unknown]
  - Placental insufficiency [Not Recovered/Not Resolved]
  - Live birth [Unknown]
